FAERS Safety Report 8763722 (Version 1)
Quarter: 2012Q4

REPORT INFORMATION
  Report Type: 
  Country: US (occurrence: US)
  Receive Date: 20120828
  Receipt Date: 20120828
  Transmission Date: 20130627
  Serious: No
  Sender: FDA-Public Use
  Company Number: US-B.I. PHARMACEUTICALS,INC./RIDGEFIELD-2012-BP-20369BP

PATIENT
  Age: 67 Year
  Sex: Female

DRUGS (10)
  1. SPIRIVA [Suspect]
     Indication: CHRONIC OBSTRUCTIVE PULMONARY DISEASE
     Dosage: 18 mcg
     Route: 055
     Dates: start: 201208
  2. SPIRIVA [Suspect]
     Route: 048
     Dates: start: 20120821, end: 20120821
  3. ASPIRIN [Concomitant]
     Dosage: 81 mg
     Route: 048
  4. FUROSEMIDE [Concomitant]
     Dosage: 20 mg
     Route: 048
  5. LORAZEPAM [Concomitant]
  6. METOPROLOL [Concomitant]
     Dosage: 50 mg
     Route: 048
  7. PLAVIX [Concomitant]
     Dosage: 75 mg
     Route: 048
  8. POTASSIUM [Concomitant]
  9. SERTRALINE HCL [Concomitant]
     Dosage: 50 mg
     Route: 048
  10. SIMVISTATIN [Concomitant]
     Dosage: 80 mg
     Route: 048

REACTIONS (1)
  - Incorrect route of drug administration [Recovered/Resolved]
